FAERS Safety Report 9239501 (Version 2)
Quarter: 2013Q3

REPORT INFORMATION
  Report Type: Report from Study
  Country: US (occurrence: US)
  Receive Date: 20130418
  Receipt Date: 20130711
  Transmission Date: 20140515
  Serious: Yes (Hospitalization)
  Sender: FDA-Public Use
  Company Number: US-ROCHE-1212238

PATIENT
  Age: 77 Year
  Sex: Male
  Weight: 63.04 kg

DRUGS (16)
  1. RITUXIMAB [Suspect]
     Indication: CHRONIC LYMPHOCYTIC LEUKAEMIA
     Dosage: DATE OF LAST DOSE PRIOR TO SAE:13/DEC/2012
     Route: 042
     Dates: start: 20121219, end: 20130213
  2. BLINDED CAL-101 (PI3K DELTA INHIBITOR) [Suspect]
     Indication: CHRONIC LYMPHOCYTIC LEUKAEMIA
     Route: 048
     Dates: start: 20121219, end: 20130213
  3. STELAZINE [Concomitant]
  4. ASA [Concomitant]
  5. CHOLECALCIFEROL [Concomitant]
  6. COLACE [Concomitant]
     Route: 065
     Dates: start: 20130116
  7. VIACTIV [Concomitant]
     Route: 065
     Dates: end: 20130116
  8. LUTEIN [Concomitant]
  9. FOSAMAX [Concomitant]
  10. SENNA [Concomitant]
  11. SOLU-MEDROL [Concomitant]
     Route: 065
     Dates: start: 20130116, end: 20130130
  12. BENADRYL [Concomitant]
     Route: 065
     Dates: start: 20130130, end: 20130213
  13. SELENIUM [Concomitant]
  14. ACETAMINOPHEN [Concomitant]
     Route: 065
     Dates: start: 20130130, end: 20130213
  15. ACETAMINOPHEN [Concomitant]
     Route: 048
     Dates: start: 20130215
  16. DIOVAN [Concomitant]

REACTIONS (3)
  - Hypercalcaemia [Recovered/Resolved]
  - Renal failure acute [Not Recovered/Not Resolved]
  - Pyrexia [Recovered/Resolved]
